FAERS Safety Report 7052888-6 (Version None)
Quarter: 2010Q4

REPORT INFORMATION
  Report Type: 
  Country: None (occurrence: None)
  Receive Date: 20101020
  Receipt Date: 20101012
  Transmission Date: 20110411
  Serious: Yes (Hospitalization)
  Sender: FDA-Public Use
  Company Number: US-BIOGENIDEC-2010BI035425

PATIENT
  Sex: Female
  Weight: 70 kg

DRUGS (9)
  1. TYSABRI [Suspect]
     Indication: MULTIPLE SCLEROSIS
     Route: 042
     Dates: start: 20070924
  2. CLONAZEPAM [Concomitant]
  3. ALPRAZOLAM [Concomitant]
  4. DOXEPIN HCL [Concomitant]
  5. LEXAPRO [Concomitant]
  6. LYRICA [Concomitant]
  7. OMEPRAZOLE [Concomitant]
  8. MAALOX [Concomitant]
  9. LOVENOX [Concomitant]

REACTIONS (1)
  - NEUROGENIC BLADDER [None]
